FAERS Safety Report 10623663 (Version 1)
Quarter: 2014Q4

REPORT INFORMATION
  Report Type: Spontaneous
  Country: KR (occurrence: KR)
  Receive Date: 20141203
  Receipt Date: 20141203
  Transmission Date: 20150529
  Serious: Yes (Hospitalization)
  Sender: FDA-Public Use
  Company Number: KR-BAXTER-2014BAX070415

PATIENT
  Age: 18 Month
  Sex: Male
  Weight: 12 kg

DRUGS (4)
  1. THIOPENTAL [Suspect]
     Active Substance: THIOPENTAL
     Indication: INDUCTION OF ANAESTHESIA
     Route: 042
  2. BAXTER SEVOFLURANE [Suspect]
     Active Substance: SEVOFLURANE
     Dosage: 2.0-2.5 VOL%
     Route: 055
  3. NITROUS OXIDE. [Concomitant]
     Active Substance: NITROUS OXIDE
     Indication: MAINTENANCE OF ANAESTHESIA
     Dosage: 1.5 L/MIN
     Route: 055
  4. BAXTER SEVOFLURANE [Suspect]
     Active Substance: SEVOFLURANE
     Indication: MAINTENANCE OF ANAESTHESIA
     Route: 055

REACTIONS (5)
  - Croup infectious [Recovered/Resolved]
  - Dyspnoea [None]
  - Cyanosis [None]
  - Stridor [None]
  - Endotracheal intubation complication [Recovered/Resolved]
